FAERS Safety Report 18441358 (Version 4)
Quarter: 2020Q4

REPORT INFORMATION
  Report Type: Spontaneous
  Country: US (occurrence: US)
  Receive Date: 20201029
  Receipt Date: 20201111
  Transmission Date: 20210114
  Serious: No
  Sender: FDA-Public Use
  Company Number: US-PFIZER INC-2020417343

PATIENT
  Age: 73 Year
  Sex: Female
  Weight: 56.7 kg

DRUGS (2)
  1. SYNTHROID [Concomitant]
     Active Substance: LEVOTHYROXINE SODIUM
     Indication: THYROID DISORDER
     Dosage: UNK
  2. LIOTHYRONINE SODIUM. [Suspect]
     Active Substance: LIOTHYRONINE SODIUM
     Dosage: 5 UG, 2X/DAY
     Route: 048

REACTIONS (4)
  - Malaise [Recovered/Resolved]
  - Dyspnoea [Recovered/Resolved]
  - Cardiac discomfort [Recovered/Resolved]
  - Feeling abnormal [Recovered/Resolved]
